FAERS Safety Report 15325423 (Version 1)
Quarter: 2018Q3

REPORT INFORMATION
  Report Type: Spontaneous
  Country: US (occurrence: US)
  Receive Date: 20180828
  Receipt Date: 20180828
  Transmission Date: 20181010
  Serious: No
  Sender: FDA-Public Use
  Company Number: US-GLAXOSMITHKLINE-US2018152716

PATIENT
  Age: 97 Year
  Sex: Female

DRUGS (2)
  1. ADVAIR DISKUS [Suspect]
     Active Substance: FLUTICASONE PROPIONATE\SALMETEROL XINAFOATE
     Indication: CHRONIC OBSTRUCTIVE PULMONARY DISEASE
     Dosage: 1 PUFF(S), BID
     Route: 055
     Dates: start: 2016
  2. ADVAIR DISKUS [Suspect]
     Active Substance: FLUTICASONE PROPIONATE\SALMETEROL XINAFOATE
     Indication: ASTHMA
     Dosage: 1 PUFF(S), QD

REACTIONS (8)
  - Increased upper airway secretion [Unknown]
  - Candida infection [Unknown]
  - Throat irritation [Unknown]
  - Product taste abnormal [Unknown]
  - Intentional product misuse [Unknown]
  - Cough [Unknown]
  - Intentional underdose [Unknown]
  - Productive cough [Unknown]

NARRATIVE: CASE EVENT DATE: 20180820
